FAERS Safety Report 20010989 (Version 1)
Quarter: 2021Q4

REPORT INFORMATION
  Report Type: Spontaneous
  Country: US (occurrence: US)
  Receive Date: 20211029
  Receipt Date: 20211029
  Transmission Date: 20220304
  Serious: Yes (Other)
  Sender: FDA-Public Use
  Company Number: 2021A788063

PATIENT
  Age: 74 Year
  Sex: Male

DRUGS (11)
  1. OLAPARIB [Suspect]
     Active Substance: OLAPARIB
     Indication: Prostate cancer metastatic
     Route: 065
     Dates: start: 20210201, end: 20210315
  2. BICALUTAMIDE [Concomitant]
     Active Substance: BICALUTAMIDE
     Route: 065
     Dates: start: 201512, end: 201709
  3. ENZALUTAMIDE [Concomitant]
     Active Substance: ENZALUTAMIDE
     Route: 065
     Dates: start: 20171023, end: 20181128
  4. DOCETAXEL [Concomitant]
     Active Substance: DOCETAXEL
     Route: 065
     Dates: start: 20181129, end: 20190522
  5. ABIRATERONE/PREDNISOLONE [Concomitant]
     Route: 065
     Dates: start: 20190618, end: 20200420
  6. CABAZITAXEL [Concomitant]
     Active Substance: CABAZITAXEL
     Route: 065
     Dates: start: 20181129, end: 20190522
  7. PACLITAXEL/CARBOPLATIN [Concomitant]
     Route: 065
     Dates: start: 20210331, end: 20210901
  8. DAROLUTAMIDE [Concomitant]
     Active Substance: DAROLUTAMIDE
     Route: 065
     Dates: start: 20210922
  9. PROTON BEAM [Concomitant]
     Route: 065
     Dates: start: 201701
  10. CARBAZITAXEL/ONPRO [Concomitant]
     Route: 065
     Dates: start: 20200429, end: 20201230
  11. AMITRIPTYLINE HYDROCHLORIDE [Concomitant]
     Active Substance: AMITRIPTYLINE HYDROCHLORIDE
     Route: 065
     Dates: start: 20210302

REACTIONS (1)
  - Malignant neoplasm progression [Unknown]
